FAERS Safety Report 8071767 (Version 2)
Quarter: 2013Q2

REPORT INFORMATION
  Report Type: Spontaneous
  Country: US (occurrence: US)
  Receive Date: 20110805
  Receipt Date: 20130424
  Transmission Date: 20140414
  Serious: Yes (Hospitalization, Other)
  Sender: FDA-Public Use
  Company Number: US-PFIZER INC-2011178462

PATIENT
  Age: 3 Year
  Sex: Male

DRUGS (9)
  1. DILANTIN-125 [Suspect]
     Dosage: 80 MG, 2X/DAY
     Route: 048
     Dates: start: 20030118
  2. DILANTIN-125 [Suspect]
     Dosage: 100 MG, 2X/DAY
     Route: 048
     Dates: start: 20030119
  3. DILANTIN-125 [Suspect]
     Dosage: 125 MG, EVERY 12 HOURS
     Route: 048
     Dates: start: 20030123
  4. DILANTIN [Suspect]
     Dosage: 80 MG, 2X/DAY
     Route: 042
     Dates: start: 20030118
  5. DILANTIN [Suspect]
     Dosage: 100 MG, 2X/DAY
     Route: 042
     Dates: start: 20030119
  6. DILANTIN [Suspect]
     Dosage: 125 MG, EVRY 12 HOURS
     Route: 042
     Dates: start: 20030123
  7. TYLENOL WITH CODEINE [Concomitant]
     Dosage: UNK
     Dates: start: 20030119
  8. KETAMINE [Concomitant]
     Dosage: 20 MG, UNK
     Route: 042
     Dates: start: 20030120
  9. VANCOMYCIN [Concomitant]
     Dosage: 250 MG, 2X/DAY
     Dates: start: 20030122

REACTIONS (1)
  - Stevens-Johnson syndrome [Unknown]
